FAERS Safety Report 5921246-7 (Version None)
Quarter: 2008Q4

REPORT INFORMATION
  Report Type: 
  Country: None (occurrence: None)
  Receive Date: 20081014
  Receipt Date: 20080929
  Transmission Date: 20090506
  Serious: Yes (Hospitalization)
  Sender: FDA-Public Use
  Company Number: 2008002523

PATIENT
  Age: 81 Year
  Sex: Female

DRUGS (5)
  1. ERLOTINIB (ERLOTINIB) (TABLET) (ERLOTINIB) [Suspect]
     Indication: NON-SMALL CELL LUNG CANCER
     Dosage: (150 MG,QD), ORAL
     Route: 048
     Dates: start: 20051128
  2. PROCOR (AMIODARONE HYDROCHLORIDE) [Concomitant]
  3. NORMITEN (ATENOLOL) [Concomitant]
  4. PRIMIDONE [Concomitant]
  5. CARTIA (ACETYLSALIC ACID) [Concomitant]

REACTIONS (2)
  - DIARRHOEA [None]
  - HYPERKALAEMIA [None]
